FAERS Safety Report 7691230-4 (Version None)
Quarter: 2011Q3

REPORT INFORMATION
  Report Type: 
  Country: None (occurrence: None)
  Receive Date: 20110818
  Receipt Date: 20110809
  Transmission Date: 20111222
  Serious: Yes (Other)
  Sender: FDA-Public Use
  Company Number: CA-ASTRAZENECA-2011SE47698

PATIENT
  Age: 63 Year
  Sex: Male

DRUGS (2)
  1. METOPROLOL TARTRATE [Concomitant]
  2. CRESTOR [Suspect]
     Indication: HYPERCHOLESTEROLAEMIA
     Route: 048

REACTIONS (1)
  - PANCYTOPENIA [None]
